FAERS Safety Report 9804164 (Version 1)
Quarter: 2014Q1

REPORT INFORMATION
  Report Type: Spontaneous
  Country: DE (occurrence: DE)
  Receive Date: 20140108
  Receipt Date: 20140108
  Transmission Date: 20141002
  Serious: Yes (Other)
  Sender: FDA-Public Use
  Company Number: PHHY2014DE001176

PATIENT
  Age: 80 Year
  Sex: Female

DRUGS (8)
  1. METHOTREXATE [Suspect]
     Indication: RHEUMATOID ARTHRITIS
     Dosage: 25 MG, QW
  2. OMEPRAZOLE [Concomitant]
     Dosage: 40 MG, QD
  3. CITALOPRAM [Concomitant]
     Dosage: 20 MG, QD
  4. CLOPIDOGREL [Concomitant]
     Dosage: 75 MG, QD
  5. METAMIZOLE [Concomitant]
     Dosage: 500 MG, UNK
  6. PROPANOLOL [Concomitant]
     Dosage: 10 MG, QD
  7. LEFLUNOMIDE [Concomitant]
     Dosage: 10 MG, QD
  8. PREDNISOLONE [Concomitant]
     Dosage: 10 MG, QD

REACTIONS (5)
  - Toxicity to various agents [Unknown]
  - Lichenification [Recovering/Resolving]
  - Stomatitis [Recovered/Resolved]
  - Mucosal membrane hyperplasia [Recovering/Resolving]
  - Mouth ulceration [Recovering/Resolving]
